FAERS Safety Report 17028841 (Version 2)
Quarter: 2019Q4

REPORT INFORMATION
  Report Type: Spontaneous
  Country: BA (occurrence: BA)
  Receive Date: 20191114
  Receipt Date: 20191125
  Transmission Date: 20200122
  Serious: Yes (Other)
  Sender: FDA-Public Use
  Company Number: BA-ABBVIE-19K-211-2996886-00

PATIENT
  Age: 56 Year
  Sex: Female

DRUGS (3)
  1. AFLIBERCEPT [Concomitant]
     Active Substance: AFLIBERCEPT
     Indication: PRODUCT USED FOR UNKNOWN INDICATION
     Dosage: THREE DOSES ARE PLANNED
     Route: 050
     Dates: start: 20190927
  2. HUMIRA [Suspect]
     Active Substance: ADALIMUMAB
     Indication: UVEITIS
     Route: 058
     Dates: start: 20180228, end: 20191010
  3. AVASTIN [Concomitant]
     Active Substance: BEVACIZUMAB
     Indication: PRODUCT USED FOR UNKNOWN INDICATION
     Dosage: THREE DOSES TOTALLY, INTRAVITREOUSLY
     Route: 050
     Dates: start: 20190313, end: 20190710

REACTIONS (6)
  - Uveitis [Unknown]
  - Vitritis [Recovered/Resolved]
  - Macular oedema [Not Recovered/Not Resolved]
  - Retinal disorder [Recovered/Resolved]
  - Intraocular lens implant [Recovered/Resolved]
  - Vitreous opacities [Recovered/Resolved]

NARRATIVE: CASE EVENT DATE: 20180828
